FAERS Safety Report 7392514-X (Version None)
Quarter: 2011Q2

REPORT INFORMATION
  Report Type: 
  Country: None (occurrence: None)
  Receive Date: 20110404
  Receipt Date: 20110331
  Transmission Date: 20111010
  Serious: Yes (Hospitalization, Other)
  Sender: FDA-Public Use
  Company Number: CA-ABBOTT-10P-028-0619517-00

PATIENT
  Sex: Male
  Weight: 71.8 kg

DRUGS (4)
  1. MAVIK [Suspect]
     Indication: ACUTE MYOCARDIAL INFARCTION
  2. MAVIK [Suspect]
     Indication: HYPERTENSION
     Dates: start: 20090817
  3. PUFFERS [Concomitant]
     Indication: CHRONIC OBSTRUCTIVE PULMONARY DISEASE
  4. BISOPROL [Concomitant]
     Indication: PRODUCT USED FOR UNKNOWN INDICATION

REACTIONS (9)
  - CORONARY ARTERY DISEASE [None]
  - RIGHT VENTRICULAR DYSFUNCTION [None]
  - ANGINA PECTORIS [None]
  - ACUTE CORONARY SYNDROME [None]
  - VENTRICULAR HYPOKINESIA [None]
  - CARDIAC DISORDER [None]
  - MYOCARDIAL INFARCTION [None]
  - CAROTID ARTERY STENOSIS [None]
  - PNEUMOTHORAX [None]
